FAERS Safety Report 5725761-0 (Version None)
Quarter: 2008Q2

REPORT INFORMATION
  Report Type: 
  Country: None (occurrence: None)
  Receive Date: 20080429
  Receipt Date: 20080414
  Transmission Date: 20081010
  Serious: Yes (Hospitalization)
  Sender: FDA-Public Use
  Company Number: 2008BI007798

PATIENT
  Age: 30 Year
  Sex: Female

DRUGS (8)
  1. TYSABRI [Suspect]
     Indication: MULTIPLE SCLEROSIS
     Dosage: 300 MG; QM; IV
     Route: 042
     Dates: start: 20041222
  2. SYNTHROID [Concomitant]
  3. TRAZODONE HCL [Concomitant]
  4. EFFEXOR [Concomitant]
  5. WELLBUTRIN [Concomitant]
  6. JUNEL 1.5/30 [Concomitant]
  7. LORTAB [Concomitant]
  8. OMNICEF [Concomitant]

REACTIONS (19)
  - APPENDICITIS [None]
  - BASEDOW'S DISEASE [None]
  - CONSTIPATION [None]
  - DYSURIA [None]
  - FACIAL PAIN [None]
  - FALL [None]
  - FATIGUE [None]
  - FUNGAL INFECTION [None]
  - GASTROENTERITIS VIRAL [None]
  - GASTROINTESTINAL INFLAMMATION [None]
  - HAEMANGIOMA OF LIVER [None]
  - HEADACHE [None]
  - LETHARGY [None]
  - NECK PAIN [None]
  - NERVE INJURY [None]
  - ORAL CANDIDIASIS [None]
  - TREMOR [None]
  - TRIGEMINAL NEURALGIA [None]
  - URINARY TRACT INFECTION [None]
